FAERS Safety Report 10673314 (Version 1)
Quarter: 2014Q4

REPORT INFORMATION
  Report Type: Report from Study
  Country: US (occurrence: US)
  Receive Date: 20141224
  Receipt Date: 20141224
  Transmission Date: 20150529
  Serious: Yes (Hospitalization)
  Sender: FDA-Public Use
  Company Number: US-BIOGENIDEC-2014BI137767

PATIENT
  Age: 56 Year
  Sex: Female

DRUGS (1)
  1. TYSABRI [Suspect]
     Active Substance: NATALIZUMAB
     Indication: MULTIPLE SCLEROSIS
     Route: 042
     Dates: start: 20121108, end: 20141113

REACTIONS (7)
  - Metabolic encephalopathy [Recovered/Resolved]
  - Unresponsive to stimuli [Recovered/Resolved]
  - Sepsis [Unknown]
  - Overdose [Recovered/Resolved]
  - Hypotension [Unknown]
  - Acute kidney injury [Unknown]
  - Urinary tract infection [Unknown]

NARRATIVE: CASE EVENT DATE: 20141201
